FAERS Safety Report 14317298 (Version 2)
Quarter: 2018Q2

REPORT INFORMATION
  Report Type: Spontaneous
  Country: DE (occurrence: DE)
  Receive Date: 20171222
  Receipt Date: 20180430
  Transmission Date: 20180711
  Serious: Yes (Other)
  Sender: FDA-Public Use
  Company Number: PHHY2017DE191123

PATIENT
  Age: 64 Year
  Sex: Male
  Weight: 74 kg

DRUGS (7)
  1. DENOSUMAB [Suspect]
     Active Substance: DENOSUMAB
     Indication: NON-SMALL CELL LUNG CANCER STAGE IV
     Dosage: 120 MG, Q3W
     Route: 058
     Dates: start: 20170803, end: 20171006
  2. PEMETREXED. [Suspect]
     Active Substance: PEMETREXED
     Indication: NON-SMALL CELL LUNG CANCER STAGE IV
     Dosage: 930 MG, Q3W
     Route: 042
     Dates: start: 20170803
  3. CARBOPLATIN. [Suspect]
     Active Substance: CARBOPLATIN
     Dosage: 450 MG, Q3W
     Route: 042
     Dates: start: 20171026
  4. PEMETREXED. [Suspect]
     Active Substance: PEMETREXED
     Dosage: 930 MG, Q3W
     Route: 042
     Dates: start: 20171006
  5. CARBOPLATIN. [Suspect]
     Active Substance: CARBOPLATIN
     Indication: NON-SMALL CELL LUNG CANCER STAGE IV
     Dosage: 450 MG, Q3W
     Route: 042
     Dates: start: 20170803
  6. PEMETREXED. [Suspect]
     Active Substance: PEMETREXED
     Dosage: 930 MG, Q3W
     Route: 042
     Dates: start: 20171026
  7. CARBOPLATIN. [Suspect]
     Active Substance: CARBOPLATIN
     Dosage: 450 MG, Q3W
     Route: 042
     Dates: start: 20171006

REACTIONS (1)
  - Gingival disorder [Not Recovered/Not Resolved]

NARRATIVE: CASE EVENT DATE: 20171021
